FAERS Safety Report 5261902-X (Version None)
Quarter: 2007Q1

REPORT INFORMATION
  Report Type: 
  Country: None (occurrence: None)
  Receive Date: 20070310
  Receipt Date: 20070228
  Transmission Date: 20070707
  Serious: Yes (Hospitalization, Other)
  Sender: FDA-Public Use
  Company Number: 2006UW23904

PATIENT
  Sex: Female
  Weight: 58.2 kg

DRUGS (5)
  1. SEROQUEL [Suspect]
     Route: 048
  2. ZYPREXA [Suspect]
  3. CLOZARIL [Concomitant]
  4. GEODON [Concomitant]
  5. RISPERDAL [Concomitant]

REACTIONS (4)
  - DIABETES MELLITUS [None]
  - HYPERPROLACTINAEMIA [None]
  - PANCREATITIS [None]
  - RENAL DISORDER [None]
